FAERS Safety Report 8499729-8 (Version None)
Quarter: 2012Q3

REPORT INFORMATION
  Report Type: 
  Country: None (occurrence: None)
  Receive Date: 20120703
  Receipt Date: 20120703
  Transmission Date: 20120928
  Serious: Yes (Other)
  Sender: FDA-Public Use
  Company Number: None

PATIENT
  Sex: Female

DRUGS (1)
  1. ORENCIA 125MG/1 ML 125 MG EVERY WEEK SQ  BMS [Suspect]
     Dosage: 125 MG EVERY WEEK SQ
     Route: 058
     Dates: start: 20120524, end: 20120621

REACTIONS (3)
  - CHEST PAIN [None]
  - DEPRESSION [None]
  - ANXIETY [None]
